FAERS Safety Report 20298189 (Version 1)
Quarter: 2022Q1

REPORT INFORMATION
  Report Type: Spontaneous
  Country: US (occurrence: None)
  Receive Date: 20220105
  Receipt Date: 20220105
  Transmission Date: 20220423
  Serious: Yes (Other)
  Sender: FDA-Public Use
  Company Number: US-ROCHE-2748978

PATIENT
  Age: 76 Year
  Sex: Female
  Weight: 64.2 kg

DRUGS (1)
  1. ACTIVASE [Suspect]
     Active Substance: ALTEPLASE
     Indication: Ischaemic stroke
     Dosage: BOLUS 5.8 MG/ DRIP 52MG.
     Route: 065

REACTIONS (1)
  - Angioedema [Recovered/Resolved]
